FAERS Safety Report 14607813 (Version 1)
Quarter: 2018Q1

REPORT INFORMATION
  Report Type: Other
  Country: DE (occurrence: DE)
  Receive Date: 20180307
  Receipt Date: 20180307
  Transmission Date: 20180509
  Serious: Yes (Other)
  Sender: FDA-Public Use
  Company Number: DE-GLENMARK PHARMACEUTICALS-2018GMK032726

PATIENT

DRUGS (1)
  1. LINEZOLID. [Suspect]
     Active Substance: LINEZOLID
     Indication: PRODUCT USED FOR UNKNOWN INDICATION
     Dosage: 600 MG, BID (600 MG, Q12H)
     Route: 048
     Dates: start: 20171213, end: 20171220

REACTIONS (5)
  - Glossitis [Unknown]
  - Dysphagia [Unknown]
  - Stomatitis [Unknown]
  - Enterococcus test positive [Unknown]
  - Sepsis [Unknown]

NARRATIVE: CASE EVENT DATE: 20171219
